FAERS Safety Report 4629286-5 (Version None)
Quarter: 2005Q2

REPORT INFORMATION
  Report Type: 
  Country: None (occurrence: None)
  Receive Date: 20050405
  Receipt Date: 20050405
  Transmission Date: 20051028
  Serious: Yes (Other)
  Sender: FDA-Public Use
  Company Number: None

PATIENT
  Age: 14 Year
  Sex: Female
  Weight: 54.8852 kg

DRUGS (1)
  1. LAMICTAL [Suspect]
     Dosage: 25 MG PO BID
     Route: 048
     Dates: start: 20050329, end: 20050404

REACTIONS (2)
  - ANORECTAL DISORDER [None]
  - RASH PAPULAR [None]
